FAERS Safety Report 24692625 (Version 1)
Quarter: 2024Q4

REPORT INFORMATION
  Report Type: Spontaneous
  Country: US (occurrence: None)
  Receive Date: 20241203
  Receipt Date: 20241203
  Transmission Date: 20250115
  Serious: No
  Sender: Public
  Company Number: None

PATIENT
  Age: 72 Year
  Sex: Female
  Weight: 72 kg

DRUGS (3)
  1. INSULIN GLARGINE-YFGN [Suspect]
     Active Substance: INSULIN GLARGINE-YFGN
     Indication: Diabetes mellitus
     Dosage: FREQUENCY : TWICE A DAY;?
     Route: 058
  2. LANTUS [Suspect]
     Active Substance: INSULIN GLARGINE
  3. INSULIN DEGLUDEC [Suspect]
     Active Substance: INSULIN DEGLUDEC

REACTIONS (5)
  - Hypertension [None]
  - Vision blurred [None]
  - Lacunar infarction [None]
  - Diplopia [None]
  - Drug intolerance [None]

NARRATIVE: CASE EVENT DATE: 20240715
